FAERS Safety Report 23959713 (Version 9)
Quarter: 2025Q2

REPORT INFORMATION
  Report Type: Report from Study
  Country: CO (occurrence: CO)
  Receive Date: 20240611
  Receipt Date: 20250610
  Transmission Date: 20250717
  Serious: Yes (Hospitalization, Other)
  Sender: TAKEDA
  Company Number: CO-TAKEDA-2024TUS020700

PATIENT
  Age: 70 Year
  Sex: Male
  Weight: 57 kg

DRUGS (3)
  1. VEDOLIZUMAB [Suspect]
     Active Substance: VEDOLIZUMAB
     Indication: Colitis ulcerative
  2. MESALAMINE [Suspect]
     Active Substance: MESALAMINE
     Indication: Product used for unknown indication
  3. AZATHIOPRINE [Concomitant]
     Active Substance: AZATHIOPRINE

REACTIONS (12)
  - Nephrolithiasis [Unknown]
  - Gastroenteritis [Recovering/Resolving]
  - Pulmonary pain [Unknown]
  - Benign prostatic hyperplasia [Unknown]
  - Weight decreased [Unknown]
  - Micturition urgency [Unknown]
  - Limb injury [Unknown]
  - Weight increased [Unknown]
  - Calculus bladder [Unknown]
  - Post procedural haemorrhage [Unknown]
  - Headache [Unknown]
  - Procedural pain [Unknown]

NARRATIVE: CASE EVENT DATE: 20240301
